FAERS Safety Report 14769592 (Version 1)
Quarter: 2018Q2

REPORT INFORMATION
  Report Type: Spontaneous
  Country: DE (occurrence: DE)
  Receive Date: 20180417
  Receipt Date: 20180417
  Transmission Date: 20180711
  Serious: Yes (Hospitalization, Other)
  Sender: FDA-Public Use
  Company Number: DE-ASTELLAS-2018US017939

PATIENT
  Age: 25 Year
  Sex: Female

DRUGS (9)
  1. TACROLIMUS. [Suspect]
     Active Substance: TACROLIMUS
     Indication: STEM CELL TRANSPLANT
     Dosage: 8-12 UG/L, UNKNOWN FREQ.
     Route: 065
  2. VALACICLOVIR [Concomitant]
     Active Substance: VALACYCLOVIR HYDROCHLORIDE
     Indication: ANTIVIRAL PROPHYLAXIS
     Route: 065
  3. MYCOPHENOLATE MOFETIL. [Concomitant]
     Active Substance: MYCOPHENOLATE MOFETIL
     Indication: STEM CELL TRANSPLANT
     Route: 065
  4. FLUDARABINE [Concomitant]
     Active Substance: FLUDARABINE PHOSPHATE
     Indication: IMMUNE TOLERANCE INDUCTION
     Route: 065
  5. AMSACRINE [Concomitant]
     Active Substance: AMSACRINE
     Indication: IMMUNE TOLERANCE INDUCTION
     Route: 065
  6. CYTARABINE. [Concomitant]
     Active Substance: CYTARABINE
     Indication: IMMUNE TOLERANCE INDUCTION
     Route: 065
  7. CYCLOPHOSPHAMIDE. [Concomitant]
     Active Substance: CYCLOPHOSPHAMIDE
     Indication: IMMUNE TOLERANCE INDUCTION
     Route: 065
  8. MICAFUNGIN [Concomitant]
     Active Substance: MICAFUNGIN
     Indication: ANTIVIRAL PROPHYLAXIS
     Route: 065
  9. PENTAMIDINE [Concomitant]
     Active Substance: PENTAMIDINE
     Indication: ANTIFUNGAL PROPHYLAXIS
     Dosage: UNK UNK, MONTHLY
     Route: 065

REACTIONS (6)
  - Aplasia [Unknown]
  - Pain in extremity [Unknown]
  - Off label use [Unknown]
  - Plantar erythema [Unknown]
  - Palmar erythema [Unknown]
  - Oedema peripheral [Unknown]
